FAERS Safety Report 9365729 (Version 1)
Quarter: 2013Q2

REPORT INFORMATION
  Report Type: Spontaneous
  Country: US (occurrence: None)
  Receive Date: 20130624
  Receipt Date: 20130624
  Transmission Date: 20140414
  Serious: Yes (Hospitalization)
  Sender: FDA-Public Use
  Company Number: None

PATIENT
  Age: 34 Year
  Sex: Male
  Weight: 67.7 kg

DRUGS (1)
  1. BUPROPION [Suspect]
     Indication: DEPRESSION
     Route: 048
     Dates: start: 20130528, end: 20130609

REACTIONS (12)
  - Depression [None]
  - Suicidal ideation [None]
  - Marital problem [None]
  - Poor quality sleep [None]
  - Decreased appetite [None]
  - Weight decreased [None]
  - Affect lability [None]
  - Feeling abnormal [None]
  - Insomnia [None]
  - No therapeutic response [None]
  - Bipolar disorder [None]
  - Drug dependence [None]
